FAERS Safety Report 7042886-0 (Version None)
Quarter: 2010Q4

REPORT INFORMATION
  Report Type: 
  Country: None (occurrence: None)
  Receive Date: 20101013
  Receipt Date: 20100805
  Transmission Date: 20110411
  Serious: No
  Sender: FDA-Public Use
  Company Number: US-ASTRAZENECA-2010SE19193

PATIENT
  Age: 63 Year
  Sex: Female
  Weight: 82.1 kg

DRUGS (5)
  1. SYMBICORT [Suspect]
     Indication: CHRONIC OBSTRUCTIVE PULMONARY DISEASE
     Dosage: 640 MCG DAILY
     Route: 055
  2. INSULIN [Concomitant]
     Indication: DIABETES MELLITUS
  3. JANUMET [Concomitant]
     Indication: DIABETES MELLITUS
  4. GABAPENTIN [Concomitant]
  5. VENTOLIN HFA [Concomitant]
     Dosage: PRN, EVERY 4 HOURS

REACTIONS (4)
  - DRUG DOSE OMISSION [None]
  - DYSPNOEA [None]
  - LOWER RESPIRATORY TRACT INFECTION [None]
  - WHEEZING [None]
